FAERS Safety Report 4626806-1 (Version None)
Quarter: 2005Q2

REPORT INFORMATION
  Report Type: 
  Country: None (occurrence: None)
  Receive Date: 20050405
  Receipt Date: 20050329
  Transmission Date: 20051028
  Serious: Yes (Hospitalization, Other)
  Sender: FDA-Public Use
  Company Number: GXKR2005US00708

PATIENT
  Age: 47 Year
  Sex: Female

DRUGS (2)
  1. SULFAMETHOXAZOLE+TRIMETHOPRIM (NGX) [Suspect]
     Indication: BRONCHITIS
     Dates: start: 19980801
  2. CLOZAPINE [Suspect]
     Dosage: UNK, UNK

REACTIONS (7)
  - CONFUSIONAL STATE [None]
  - DRUG INTERACTION [None]
  - DYSPEPSIA [None]
  - FATIGUE [None]
  - NEUTROPENIA [None]
  - PARANOIA [None]
  - THROMBOCYTOPENIA [None]
